FAERS Safety Report 6107573-1 (Version None)
Quarter: 2009Q1

REPORT INFORMATION
  Report Type: 
  Country: None (occurrence: None)
  Receive Date: 20090309
  Receipt Date: 20090306
  Transmission Date: 20090719
  Serious: Yes (Death)
  Sender: FDA-Public Use
  Company Number: PHEH2009US02378

PATIENT
  Sex: Male

DRUGS (2)
  1. NEORAL [Suspect]
     Dosage: 275 MG, BID
     Route: 048
     Dates: start: 20080501
  2. CELLCEPT [Concomitant]

REACTIONS (1)
  - INFECTION [None]
